FAERS Safety Report 5626248-6 (Version None)
Quarter: 2008Q1

REPORT INFORMATION
  Report Type: 
  Country: None (occurrence: None)
  Receive Date: 20080214
  Receipt Date: 20080207
  Transmission Date: 20080703
  Serious: Yes (Other)
  Sender: FDA-Public Use
  Company Number: US-GENENTECH-255776

PATIENT
  Age: 55 Year
  Sex: Male
  Weight: 79.4 kg

DRUGS (1)
  1. RAPTIVA [Suspect]
     Indication: PSORIASIS
     Dosage: 100 MG/ML, 1/WEEK
     Route: 058

REACTIONS (1)
  - HEPATITIS B CORE ANTIGEN POSITIVE [None]
